FAERS Safety Report 19770680 (Version 3)
Quarter: 2022Q1

REPORT INFORMATION
  Report Type: Spontaneous
  Country: US (occurrence: US)
  Receive Date: 20210831
  Receipt Date: 20220202
  Transmission Date: 20220423
  Serious: Yes (Life-Threatening)
  Sender: FDA-Public Use
  Company Number: US-SA-SAC20210830001096

PATIENT
  Age: 67 Year
  Sex: Male

DRUGS (2)
  1. KEVZARA [Suspect]
     Active Substance: SARILUMAB
     Indication: Bone disorder
     Dosage: 200 MG,QOW
     Route: 058
     Dates: start: 202101
  2. KEVZARA [Suspect]
     Active Substance: SARILUMAB
     Indication: Rheumatoid arthritis

REACTIONS (3)
  - Product use in unapproved indication [Unknown]
  - Joint swelling [Not Recovered/Not Resolved]
  - Drug ineffective [Unknown]

NARRATIVE: CASE EVENT DATE: 20210101
